FAERS Safety Report 23683937 (Version 4)
Quarter: 2024Q4

REPORT INFORMATION
  Report Type: Spontaneous
  Country: JP (occurrence: JP)
  Receive Date: 20240328
  Receipt Date: 20241230
  Transmission Date: 20250115
  Serious: Yes (Death, Other)
  Sender: BRISTOL-MYERS SQUIBB COMPANY
  Company Number: CN-BRISTOL-MYERS SQUIBB COMPANY-2024-047961

PATIENT
  Age: 84 Year
  Sex: Female

DRUGS (9)
  1. AZACITIDINE [Suspect]
     Active Substance: AZACITIDINE
     Indication: Acute promyelocytic leukaemia
     Dosage: ON  DAYS  1  TO  7?100-105 MG DAILY
     Route: 042
     Dates: start: 20211014, end: 20220613
  2. VENETOCLAX [Suspect]
     Active Substance: VENETOCLAX
     Indication: Acute promyelocytic leukaemia
     Dosage: 50MG/BODY  ON  DAY1
     Dates: start: 20211014, end: 20211014
  3. VENETOCLAX [Suspect]
     Active Substance: VENETOCLAX
     Dosage: 100MG/BODY  ON  DAY2
     Dates: start: 20211015, end: 20211015
  4. VENETOCLAX [Suspect]
     Active Substance: VENETOCLAX
     Dosage: 200MG/BODY ON DAYS 3 TO 28
     Dates: start: 20211016, end: 20211016
  5. VENETOCLAX [Suspect]
     Active Substance: VENETOCLAX
     Dosage: 100MG/BODY  ON  DAY2
  6. VENETOCLAX [Suspect]
     Active Substance: VENETOCLAX
     Dosage: 100MG/BODY  ON  DAY2
     Dates: start: 20220808, end: 20220808
  7. VENETOCLAX [Suspect]
     Active Substance: VENETOCLAX
     Dosage: 100MG/BODY  ON  DAY2
     Dates: start: 20220809, end: 20220811
  8. VENETOCLAX [Suspect]
     Active Substance: VENETOCLAX
     Dosage: 100MG/BODY  ON  DAY2
     Dates: start: 20220819, end: 20220822
  9. FLUCONAZOLE [Concomitant]
     Active Substance: FLUCONAZOLE
     Indication: Acute promyelocytic leukaemia

REACTIONS (1)
  - Gastrointestinal haemorrhage [Fatal]

NARRATIVE: CASE EVENT DATE: 20220928
